FAERS Safety Report 14048507 (Version 1)
Quarter: 2017Q4

REPORT INFORMATION
  Report Type: Spontaneous
  Country: US (occurrence: US)
  Receive Date: 20171005
  Receipt Date: 20171005
  Transmission Date: 20180321
  Serious: Yes (Hospitalization)
  Sender: FDA-Public Use
  Company Number: US-SA-2017SA180638

PATIENT
  Sex: Male

DRUGS (4)
  1. SOLOSTAR [Suspect]
     Active Substance: DEVICE
  2. LANTUS [Suspect]
     Active Substance: INSULIN GLARGINE
     Route: 051
  3. LEVEMIR [Suspect]
     Active Substance: INSULIN DETEMIR
     Route: 065
  4. TOUJEO [Suspect]
     Active Substance: INSULIN GLARGINE
     Route: 051

REACTIONS (3)
  - Anti-insulin antibody [Unknown]
  - Myocardial infarction [Unknown]
  - Drug ineffective [Unknown]
